FAERS Safety Report 25971308 (Version 1)
Quarter: 2025Q4

REPORT INFORMATION
  Report Type: Spontaneous
  Country: US (occurrence: US)
  Receive Date: 20251028
  Receipt Date: 20251028
  Transmission Date: 20260118
  Serious: No
  Sender: MERCK SHARP & DOHME LLC
  Company Number: US-009507513-2343177

PATIENT
  Age: 90 Year
  Sex: Male

DRUGS (6)
  1. BELSOMRA [Suspect]
     Active Substance: SUVOREXANT
     Indication: Insomnia
     Dosage: 1/4 OF A 20 MG TABLET (5 MG), NIGHTLY
     Route: 048
     Dates: start: 20251021
  2. FAMOTIDINE [Concomitant]
     Active Substance: FAMOTIDINE
  3. DIAZEPAM [Concomitant]
     Active Substance: DIAZEPAM
  4. ZOLPIDEM [Suspect]
     Active Substance: ZOLPIDEM TARTRATE
     Dosage: 1/4
     Dates: start: 20211021
  5. AMIODARONE [Concomitant]
     Active Substance: AMIODARONE
  6. COLACE [Concomitant]
     Active Substance: DOCUSATE SODIUM

REACTIONS (3)
  - Faeces discoloured [Not Recovered/Not Resolved]
  - Wrong technique in product usage process [Unknown]
  - Labelled drug-drug interaction issue [Unknown]

NARRATIVE: CASE EVENT DATE: 20251021
